FAERS Safety Report 12990041 (Version 6)
Quarter: 2017Q2

REPORT INFORMATION
  Report Type: Spontaneous
  Country: US (occurrence: US)
  Receive Date: 20161201
  Receipt Date: 20170412
  Transmission Date: 20170830
  Serious: Yes (Congenital Anomaly, Other)
  Sender: FDA-Public Use
  Company Number: PHEH2016US031105

PATIENT
  Sex: Female

DRUGS (2)
  1. ZOFRAN [Suspect]
     Active Substance: ONDANSETRON HYDROCHLORIDE
     Indication: FOETAL EXPOSURE DURING PREGNANCY
     Dosage: MOTHER DOSE: 01 DF, Q8H
     Route: 064
  2. ZOFRAN [Suspect]
     Active Substance: ONDANSETRON HYDROCHLORIDE
     Indication: FOETAL EXPOSURE DURING PREGNANCY
     Route: 064

REACTIONS (22)
  - Cleft lip [Unknown]
  - Tricuspid valve incompetence [Unknown]
  - Pulmonary valve incompetence [Unknown]
  - Otitis media [Unknown]
  - Dysarthria [Unknown]
  - Regurgitation [Unknown]
  - Speech disorder [Unknown]
  - Cough [Unknown]
  - Pierre Robin syndrome [Unknown]
  - Atrial septal defect [Unknown]
  - Injury [Unknown]
  - Otorrhoea [Unknown]
  - Pyrexia [Unknown]
  - Dacryostenosis congenital [Unknown]
  - Velopharyngeal incompetence [Unknown]
  - Eustachian tube dysfunction [Unknown]
  - Nasopharyngeal reflux [Unknown]
  - Cleft palate [Unknown]
  - Left-to-right cardiac shunt [Unknown]
  - Hand fracture [Unknown]
  - Foetal exposure during pregnancy [Unknown]
  - Pharyngitis [Unknown]
